FAERS Safety Report 5166668-X (Version None)
Quarter: 2006Q4

REPORT INFORMATION
  Report Type: 
  Country: None (occurrence: None)
  Receive Date: 20061129
  Receipt Date: 20061120
  Transmission Date: 20070319
  Serious: Yes (Hospitalization)
  Sender: FDA-Public Use
  Company Number: 2006144063

PATIENT
  Age: 87 Year
  Sex: Female

DRUGS (6)
  1. ALDACTONE [Suspect]
     Indication: CARDIAC FAILURE
     Dosage: 25 MG, QD, ORAL
     Route: 048
     Dates: end: 20060804
  2. ASPIRIN [Suspect]
     Indication: ARRHYTHMIA
     Dosage: 100 MG (100 MG, QD), ORAL
     Route: 048
  3. POTASSIUM CHLORIDE [Suspect]
     Indication: HYPOKALAEMIA
     Dosage: 600 MG (600 MG, QD), ORAL
     Route: 048
     Dates: end: 20060804
  4. FUROSEMIDE [Suspect]
     Indication: CARDIAC FAILURE
     Dosage: 40 MG, QD, ORAL
     Route: 048
  5. DIGOXIN [Suspect]
     Indication: ARRHYTHMIA
     Dosage: 0.25 MG, ORAL
     Route: 048
     Dates: start: 20020101, end: 20060804
  6. ALLOPURINOL [Suspect]
     Indication: GOUT
     Dosage: ORAL
     Route: 048

REACTIONS (4)
  - BLOOD POTASSIUM INCREASED [None]
  - CARDIOACTIVE DRUG LEVEL INCREASED [None]
  - DRUG INTERACTION [None]
  - RENAL FAILURE ACUTE [None]
